FAERS Safety Report 9538401 (Version 4)
Quarter: 2014Q2

REPORT INFORMATION
  Report Type: Spontaneous
  Country: US (occurrence: US)
  Receive Date: 20130920
  Receipt Date: 20140602
  Transmission Date: 20141212
  Serious: No
  Sender: FDA-Public Use
  Company Number: US-PFIZER INC-2013269198

PATIENT
  Age: 48 Year
  Sex: Female
  Weight: 59.41 kg

DRUGS (5)
  1. LYRICA [Suspect]
     Indication: FIBROMYALGIA
     Dosage: 100 MG, 3X/DAY
     Route: 048
  2. LYRICA [Suspect]
     Dosage: 50 MG, 3X/DAY
     Route: 048
  3. LYRICA [Suspect]
     Dosage: 100 MG, 3X/DAY
     Route: 048
  4. LYRICA [Suspect]
     Dosage: 100 MG, 3X/DAY
     Route: 048
     Dates: start: 20140416
  5. PREMARIN [Suspect]
     Indication: HORMONE REPLACEMENT THERAPY
     Dosage: 0.0625MG (62.5 UG), 1X/DAY
     Route: 048
     Dates: start: 1993

REACTIONS (4)
  - Nerve compression [Recovering/Resolving]
  - Nerve injury [Recovering/Resolving]
  - Limb discomfort [Recovering/Resolving]
  - Swelling [Unknown]
